FAERS Safety Report 5535152-3 (Version None)
Quarter: 2007Q4

REPORT INFORMATION
  Report Type: 
  Country: None (occurrence: None)
  Receive Date: 20071206
  Receipt Date: 20071201
  Transmission Date: 20080405
  Serious: Yes (Death, Other)
  Sender: FDA-Public Use
  Company Number: PHHY2007BR00727

PATIENT
  Age: 73 Year
  Sex: Female

DRUGS (3)
  1. FORASEQ [Suspect]
     Indication: BRONCHITIS
     Dosage: 12/400MCG
     Dates: start: 20040101
  2. LOSARTAN POTASSIUM [Concomitant]
     Dosage: UNK, QD
     Route: 048
  3. SIMVASTATIN [Concomitant]
     Dosage: UNK, QD
     Route: 048

REACTIONS (1)
  - CARDIAC ARREST [None]
